FAERS Safety Report 13176117 (Version 1)
Quarter: 2017Q1

REPORT INFORMATION
  Report Type: Spontaneous
  Country: US (occurrence: US)
  Receive Date: 20170201
  Receipt Date: 20170201
  Transmission Date: 20170428
  Serious: No
  Sender: FDA-Public Use
  Company Number: US-PERRIGO-16US019962

PATIENT
  Age: 89 Year
  Sex: Female
  Weight: 52.15 kg

DRUGS (2)
  1. IBUPROFEN. [Suspect]
     Active Substance: IBUPROFEN
     Dosage: 600 MG, SINGLE
     Route: 048
     Dates: start: 20160909, end: 20160909
  2. IBUPROFEN. [Suspect]
     Active Substance: IBUPROFEN
     Indication: PAIN
     Dosage: 400 MG, EVERY 4 TO 6 HOURS
     Route: 048
     Dates: start: 201608

REACTIONS (2)
  - Incorrect dose administered [Recovered/Resolved]
  - Incorrect drug administration duration [Unknown]

NARRATIVE: CASE EVENT DATE: 201608
